FAERS Safety Report 9864473 (Version 1)
Quarter: 2014Q1

REPORT INFORMATION
  Report Type: Spontaneous
  Country: US (occurrence: US)
  Receive Date: 20140203
  Receipt Date: 20140203
  Transmission Date: 20141002
  Serious: No
  Sender: FDA-Public Use
  Company Number: US-AMGEN-USASP2014002558

PATIENT
  Age: 67 Year
  Sex: Female
  Weight: 67.57 kg

DRUGS (4)
  1. ENBREL [Suspect]
     Indication: PSORIATIC ARTHROPATHY
     Dosage: UNK
     Route: 065
     Dates: start: 1996, end: 2004
  2. ENBREL [Suspect]
     Indication: RHEUMATOID ARTHRITIS
  3. TOPROL [Concomitant]
     Indication: HYPERTENSION
     Dosage: 25 MG, QD
  4. LOSARTAN [Concomitant]
     Indication: HYPERTENSION
     Dosage: 50 MG, BID

REACTIONS (1)
  - Therapeutic response decreased [Unknown]
